FAERS Safety Report 26170662 (Version 1)
Quarter: 2025Q4

REPORT INFORMATION
  Report Type: Report from Study
  Country: US (occurrence: US)
  Receive Date: 20251217
  Receipt Date: 20251217
  Transmission Date: 20260118
  Serious: No
  Sender: MALLINCKRODT
  Company Number: US-MALLINCKRODT-MNK202507511

PATIENT
  Age: 80 Year
  Sex: Male

DRUGS (10)
  1. CORTICOTROPIN [Suspect]
     Active Substance: CORTICOTROPIN
     Indication: Keratitis
     Dosage: 80 UNITS
     Dates: start: 20251015
  2. CORTICOTROPIN [Suspect]
     Active Substance: CORTICOTROPIN
     Dosage: 80 UNITS
  3. LOSARTAN [Concomitant]
     Active Substance: LOSARTAN
     Dosage: UNKNOWN
  4. LOSARTAN [Concomitant]
     Active Substance: LOSARTAN
     Dosage: UNKNOWN (DOSE REDUCED)
  5. METFORMIN [Concomitant]
     Active Substance: METFORMIN HYDROCHLORIDE
     Dosage: UNKNOWN
  6. METFORMIN [Concomitant]
     Active Substance: METFORMIN HYDROCHLORIDE
     Dosage: UNKNOWN (DOSE ADJUSTED)
  7. LASIX [Concomitant]
     Active Substance: FUROSEMIDE
  8. LASIX [Concomitant]
     Active Substance: FUROSEMIDE
  9. PREDNISONE [Concomitant]
     Active Substance: PREDNISONE
  10. PREDNISONE [Concomitant]
     Active Substance: PREDNISONE

REACTIONS (6)
  - Oxygen saturation decreased [Recovering/Resolving]
  - Balance disorder [Unknown]
  - Dyspepsia [Unknown]
  - Dysgeusia [Unknown]
  - Dyspnoea [Unknown]
  - Infection [Not Recovered/Not Resolved]

NARRATIVE: CASE EVENT DATE: 20250101
